FAERS Safety Report 20223596 (Version 1)
Quarter: 2021Q4

REPORT INFORMATION
  Report Type: Spontaneous
  Country: US (occurrence: US)
  Receive Date: 20211223
  Receipt Date: 20211223
  Transmission Date: 20220303
  Serious: No
  Sender: FDA-Public Use
  Company Number: US-PFIZER INC-202101748531

PATIENT
  Age: 4 Decade

DRUGS (1)
  1. DEPO-PROVERA [Suspect]
     Active Substance: MEDROXYPROGESTERONE ACETATE
     Dosage: UNK
     Dates: start: 1999, end: 2010

REACTIONS (3)
  - Off label use [Unknown]
  - Product use issue [Unknown]
  - Osteopenia [Unknown]
